FAERS Safety Report 15575596 (Version 3)
Quarter: 2018Q4

REPORT INFORMATION
  Report Type: Report from Study
  Country: MY (occurrence: MY)
  Receive Date: 20181101
  Receipt Date: 20181204
  Transmission Date: 20190205
  Serious: Yes (Death, Other)
  Sender: FDA-Public Use
  Company Number: MY-ASTRAZENECA-2018SF43806

PATIENT
  Age: 59 Year
  Sex: Male
  Weight: 39 kg

DRUGS (2)
  1. DURVALUMAB. [Suspect]
     Active Substance: DURVALUMAB
     Indication: NON-SMALL CELL LUNG CANCER
     Dosage: 7 CYCLES OF DRUG IN TOTAL
     Route: 042
     Dates: start: 20180524, end: 20180810
  2. DURVALUMAB. [Suspect]
     Active Substance: DURVALUMAB
     Indication: LUNG ADENOCARCINOMA
     Dosage: 7 CYCLES OF DRUG IN TOTAL
     Route: 042
     Dates: start: 20180524, end: 20180810

REACTIONS (2)
  - Tuberculosis [Unknown]
  - Malignant neoplasm progression [Fatal]

NARRATIVE: CASE EVENT DATE: 20180813
